FAERS Safety Report 16812213 (Version 1)
Quarter: 2019Q3

REPORT INFORMATION
  Report Type: Spontaneous
  Country: ES (occurrence: ES)
  Receive Date: 20190916
  Receipt Date: 20190916
  Transmission Date: 20191005
  Serious: Yes (Death)
  Sender: FDA-Public Use
  Company Number: ES-HQ SPECIALTY-ES-2019INT000234

PATIENT

DRUGS (5)
  1. CISPLATIN. [Suspect]
     Active Substance: CISPLATIN
     Indication: NON-SMALL CELL LUNG CANCER STAGE III
     Dosage: 80 MG/M2, ON DAY 1 IN 3-WEEK CYCLES; 2 CYCLES OF INDUCTION, 2 CYCLES IN CONCOMITANCE
     Route: 042
  2. VINORELBINE [Suspect]
     Active Substance: VINORELBINE TARTRATE
     Dosage: 80 MG/M2 ON CYCLE 2, DAYS 1 AND 8 DURING FOUR 3 WEEK CYCLES
     Route: 048
  3. VINORELBINE [Suspect]
     Active Substance: VINORELBINE TARTRATE
     Dosage: 40 MG/M2 ON CYCLE 3 AND 4, DAYS 1 AND 8 DURING FOUR 3 WEEK CYCLES
     Route: 048
  4. VINORELBINE [Suspect]
     Active Substance: VINORELBINE TARTRATE
     Indication: NON-SMALL CELL LUNG CANCER STAGE III
     Dosage: 60 MG/M2 ON CYCLE 1, DAYS 1 AND 8 DURING FOUR 3 WEEK CYCLES
     Route: 048
  5. RADIOTHERAPY [Suspect]
     Active Substance: RADIATION THERAPY
     Indication: NON-SMALL CELL LUNG CANCER STAGE III
     Dosage: 2 GY/DAY, ADMINISTERED CONCOMITANTLY ALONG CYCLES 3 AND 4 (66 GY)
     Route: 065

REACTIONS (1)
  - Nephropathy toxic [Fatal]
